FAERS Safety Report 8963073 (Version 1)
Quarter: 2012Q4

REPORT INFORMATION
  Report Type: 
  Country: US (occurrence: US)
  Receive Date: 20121214
  Receipt Date: 20121214
  Transmission Date: 20130627
  Serious: Yes (Other)
  Sender: FDA-Public Use
  Company Number: US-BAYER-2012-129836

PATIENT
  Age: 39 Year
  Sex: Female

DRUGS (1)
  1. MIRENA [Suspect]
     Indication: CONTRACEPTION
     Dosage: 20 mcg/24hr, CONT
     Route: 015
     Dates: start: 201207

REACTIONS (7)
  - Rash pruritic [Not Recovered/Not Resolved]
  - Skin discolouration [Not Recovered/Not Resolved]
  - Menorrhagia [None]
  - Fatigue [None]
  - Pneumonitis [None]
  - Herpes zoster [Not Recovered/Not Resolved]
  - Dyspnoea [None]
